FAERS Safety Report 7339828-7 (Version None)
Quarter: 2011Q1

REPORT INFORMATION
  Report Type: 
  Country: None (occurrence: None)
  Receive Date: 20110309
  Receipt Date: 20110225
  Transmission Date: 20110831
  Serious: Yes (Hospitalization)
  Sender: FDA-Public Use
  Company Number: ES-ELI_LILLY_AND_COMPANY-ES201004002275

PATIENT
  Sex: Female
  Weight: 69 kg

DRUGS (14)
  1. FORTEO [Suspect]
     Indication: OSTEOPOROSIS
     Dosage: 20 UG, 48 HOURLY
     Route: 058
     Dates: start: 20090201, end: 20110201
  2. ZALDIAR [Concomitant]
     Indication: PAIN
     Dosage: UNK, DAILY (1/D)
     Route: 048
  3. TORSEMIDE [Concomitant]
     Indication: HYPERTENSION
  4. LEXATIN [Concomitant]
     Indication: ANXIETY
     Dosage: 1 D/F, 2/D
     Route: 048
  5. OSVICAL D [Concomitant]
     Dosage: 1 D/F, 2/D
  6. BESITRAN [Concomitant]
     Indication: DEPRESSION
     Dosage: 50 MG, DAILY (1/D)
     Route: 048
  7. DOXIUM [Concomitant]
     Indication: VENOUS INSUFFICIENCY
  8. RANITIDINA [Concomitant]
     Indication: GASTRIC DISORDER
  9. EUTIROX [Concomitant]
     Indication: HYPOTHYROIDISM
     Dosage: 100 MG, DAILY (1/D)
     Route: 048
  10. FLATORIL [Concomitant]
     Indication: FLATULENCE
     Dosage: UNK, DAILY (1/D)
     Route: 048
  11. METAMIZOL [Concomitant]
     Indication: PAIN
     Dosage: UNK, AS NEEDED
     Route: 065
  12. ATACAND [Concomitant]
     Indication: HYPERTENSION
     Dosage: UNK, DAILY (1/D)
     Route: 048
  13. SIMVASTATIN [Concomitant]
     Indication: DYSLIPIDAEMIA
     Dosage: 40 MG, DAILY (1/D)
     Route: 048
  14. ACREL [Concomitant]
     Dosage: 2 D/F, MONTHLY (1/M)

REACTIONS (3)
  - URINARY TRACT INFECTION [None]
  - PNEUMONIA [None]
  - HYPERCALCAEMIA [None]
